FAERS Safety Report 25462222 (Version 2)
Quarter: 2025Q3

REPORT INFORMATION
  Report Type: Spontaneous
  Country: JP (occurrence: JP)
  Receive Date: 20250620
  Receipt Date: 20250703
  Transmission Date: 20251021
  Serious: No
  Sender: PFIZER
  Company Number: JP-PFIZER INC-PV202500071884

PATIENT

DRUGS (1)
  1. NGENLA [Suspect]
     Active Substance: SOMATROGON-GHLA
     Indication: Growth hormone deficiency
     Route: 058

REACTIONS (1)
  - Injection site pain [Unknown]
